FAERS Safety Report 10721379 (Version 7)
Quarter: 2015Q3

REPORT INFORMATION
  Report Type: Spontaneous
  Country: US (occurrence: US)
  Receive Date: 20150119
  Receipt Date: 20150818
  Transmission Date: 20151125
  Serious: Yes (Hospitalization, Congenital Anomaly, Other)
  Sender: FDA-Public Use
  Company Number: US-APOTEX-2015AP005243

PATIENT
  Age: 0 Day
  Sex: Male

DRUGS (23)
  1. PAROXETINE HYDROCHLORIDE. [Suspect]
     Active Substance: PAROXETINE HYDROCHLORIDE
     Indication: DEPRESSION
     Dosage: 20 MG, DAILY
     Route: 064
     Dates: end: 2004
  2. MIRALAX [Concomitant]
     Active Substance: POLYETHYLENE GLYCOL 3350
     Indication: CONSTIPATION
     Dosage: DAILY
     Route: 064
     Dates: start: 20040809, end: 20040909
  3. CIMETIDINE [Concomitant]
     Active Substance: CIMETIDINE
     Indication: GASTROOESOPHAGEAL REFLUX DISEASE
     Dosage: 400 MG, BID
     Route: 064
     Dates: start: 20040908, end: 20041008
  4. LODRANE 12D [Concomitant]
     Indication: NASAL CONGESTION
     Dosage: 6-45MG 2 X DAILY
     Route: 064
     Dates: start: 20050221, end: 20050308
  5. AMOXICILLIN. [Concomitant]
     Active Substance: AMOXICILLIN
     Indication: INFECTION
     Dosage: 250 MG, TID
     Route: 064
     Dates: start: 20050407, end: 20050411
  6. PROMETHAZINE [Concomitant]
     Active Substance: PROMETHAZINE\PROMETHAZINE HYDROCHLORIDE
     Indication: NAUSEA
     Dosage: 25 MG, EVERY 6-8HRS
     Route: 064
  7. MUCINEX [Concomitant]
     Active Substance: GUAIFENESIN
     Indication: PRODUCTIVE COUGH
     Dosage: 600 MG, BID
     Route: 064
     Dates: start: 20041028, end: 20041128
  8. MAALOX ANTACID [Concomitant]
     Active Substance: ALUMINUM HYDROXIDE\DIMETHICONE\MAGNESIUM HYDROXIDE
     Indication: NAUSEA
     Dosage: 1 TBS EVERY 4 HRS, PRN
     Route: 064
     Dates: start: 20050221, end: 20050227
  9. FERROUS SULFATE [Concomitant]
     Active Substance: FERROUS SULFATE\FERROUS SULFATE, DRIED
     Indication: IRON DEFICIENCY
     Dosage: 325M 2 X DAILY
     Route: 064
     Dates: start: 20050311, end: 20050411
  10. PROMETHAZINE [Concomitant]
     Active Substance: PROMETHAZINE\PROMETHAZINE HYDROCHLORIDE
     Indication: VOMITING
     Dosage: 6.25/5M 1-2 TSP EVERY 4-6HRS
     Route: 064
     Dates: start: 20041014
  11. PROMETHAZINE [Concomitant]
     Active Substance: PROMETHAZINE\PROMETHAZINE HYDROCHLORIDE
     Dosage: 6.25/5M 1-2 TSP EVERY 4-6HRSUNK
     Route: 064
     Dates: start: 20050128
  12. TAGAMET [Concomitant]
     Active Substance: CIMETIDINE
     Indication: GASTROOESOPHAGEAL REFLUX DISEASE
     Dosage: UNK, BID
     Route: 064
     Dates: start: 20040907
  13. CLARITIN [Concomitant]
     Active Substance: LORATADINE
     Dosage: 10 MG, QD
     Route: 064
     Dates: start: 20050128, end: 20050228
  14. PRENATE ELITE [Concomitant]
     Active Substance: .ALPHA.-TOCOPHEROL\ASCORBIC ACID\BIOTIN\CALCIUM CARBONATE\CHOLECALCIFEROL\COPPER\CYANOCOBALAMIN\FERROUS FUMARATE\FOLIC ACID\IODINE\MAGNESIUM\NIACINAMIDE\PANTOTHENIC ACID\PYRIDOXINE\RIBOFLAVIN\THIAMINE\VITAMIN A\ZINC
     Indication: PREGNANCY
     Dosage: DAILY
     Route: 064
     Dates: start: 20050215
  15. PNV [Concomitant]
     Indication: PRODUCT USED FOR UNKNOWN INDICATION
     Route: 064
  16. AMOXIL                             /00249601/ [Concomitant]
     Active Substance: AMOXICILLIN
     Indication: INFECTION
     Dosage: 250 MG, TID
     Route: 064
     Dates: start: 20041101, end: 20041111
  17. TERAZOL                            /00871201/ [Concomitant]
     Indication: FUNGAL INFECTION
     Dosage: .4 %, DAILY
     Dates: start: 20040925, end: 20041002
  18. TRIMOX                             /00086101/ [Concomitant]
     Indication: INFECTION
     Dosage: 250 MG, UNK
     Route: 064
     Dates: start: 20040925, end: 20041005
  19. CLARITIN [Concomitant]
     Active Substance: LORATADINE
     Indication: NASAL CONGESTION
     Dosage: 10 MG, QD
     Route: 064
     Dates: start: 20041026, end: 20041126
  20. MYLANTA                            /00036701/ [Concomitant]
     Indication: GASTROOESOPHAGEAL REFLUX DISEASE
     Dosage: DAILY
     Route: 064
     Dates: start: 20041019
  21. PREMESISRX [Concomitant]
     Active Substance: VITAMINS
     Indication: PREGNANCY
     Dosage: UNK
     Route: 064
     Dates: start: 20040908
  22. CIMETIDINE [Concomitant]
     Active Substance: CIMETIDINE
     Dosage: 400 UNK, UNK
     Dates: start: 20050312, end: 20050411
  23. TERAZOL                            /00871201/ [Concomitant]
     Dosage: 0.4 %, DAILY
     Route: 064
     Dates: start: 20050214, end: 20050221

REACTIONS (7)
  - Pierre Robin syndrome [Unknown]
  - Language disorder [Unknown]
  - Otitis media chronic [Unknown]
  - Cleft palate [Unknown]
  - Hydrocele [Unknown]
  - Foetal exposure during pregnancy [Unknown]
  - Gingival cyst [Unknown]

NARRATIVE: CASE EVENT DATE: 20050411
